FAERS Safety Report 20471179 (Version 3)
Quarter: 2024Q1

REPORT INFORMATION
  Report Type: Report from Study
  Country: CR (occurrence: CR)
  Receive Date: 20220214
  Receipt Date: 20240102
  Transmission Date: 20240409
  Serious: Yes (Life-Threatening, Other)
  Sender: FDA-Public Use
  Company Number: CR-NOVARTISPH-NVSC2022CR033380

PATIENT
  Age: 74 Year
  Sex: Female

DRUGS (1)
  1. EXFORGE HCT [Suspect]
     Active Substance: AMLODIPINE BESYLATE\HYDROCHLOROTHIAZIDE\VALSARTAN
     Indication: Hypertension
     Dosage: UNK, QD
     Route: 048

REACTIONS (14)
  - Feeling abnormal [Unknown]
  - Infarction [Unknown]
  - Blindness [Unknown]
  - Pain in extremity [Not Recovered/Not Resolved]
  - Limb injury [Unknown]
  - Swelling [Unknown]
  - Insomnia [Unknown]
  - Pain [Unknown]
  - Illness [Unknown]
  - Agitation [Unknown]
  - Confusional state [Unknown]
  - Gait inability [Unknown]
  - Malaise [Unknown]
  - Product dose omission issue [Unknown]

NARRATIVE: CASE EVENT DATE: 20230501
